FAERS Safety Report 4350336-8 (Version None)
Quarter: 2004Q2

REPORT INFORMATION
  Report Type: 
  Country: None (occurrence: None)
  Receive Date: 20040427
  Receipt Date: 20030807
  Transmission Date: 20050107
  Serious: No
  Sender: FDA-Public Use
  Company Number: 000621

PATIENT
  Age: 44 Year
  Sex: Male

DRUGS (7)
  1. ZEVALIN [Suspect]
     Indication: NON-HODGKIN'S LYMPHOMA
     Dosage: SEE IMAGE
     Dates: start: 20030716, end: 20030716
  2. ZEVALIN [Suspect]
     Dosage: SEE IMAGE
     Dates: start: 20030806, end: 20030806
  3. ZEVALIN [Suspect]
     Dosage: SEE IMAGE
     Dates: start: 20030813, end: 20030813
  4. .. [Suspect]
  5. .. [Suspect]
  6. .. [Suspect]
  7. .. [Suspect]

REACTIONS (2)
  - HYPERSENSITIVITY [None]
  - LYMPHOCYTOSIS [None]
